FAERS Safety Report 8311359-7 (Version None)
Quarter: 2012Q2

REPORT INFORMATION
  Report Type: 
  Country: None (occurrence: None)
  Receive Date: 20120425
  Receipt Date: 20120417
  Transmission Date: 20120825
  Serious: Yes (Hospitalization)
  Sender: FDA-Public Use
  Company Number: US-BAYER-2012-038762

PATIENT
  Age: 29 Year
  Sex: Female
  Weight: 104 kg

DRUGS (6)
  1. PROTONIX [Concomitant]
     Dosage: 40 MG, DAILY
  2. YAZ [Suspect]
     Indication: POLYCYSTIC OVARIES
  3. DULCOLAX [Concomitant]
  4. REGLAN [Concomitant]
     Dosage: 10 MG, TID PRN
  5. DROSPIRENONE AND ETHINYL ESTRADIOL [Suspect]
  6. FIORICET [Concomitant]

REACTIONS (1)
  - TRANSIENT ISCHAEMIC ATTACK [None]
